FAERS Safety Report 10142336 (Version 1)
Quarter: 2014Q2

REPORT INFORMATION
  Report Type: Report from Study
  Country: US (occurrence: US)
  Receive Date: 20140430
  Receipt Date: 20140430
  Transmission Date: 20141212
  Serious: Yes (Hospitalization, Other)
  Sender: FDA-Public Use
  Company Number: US-ROCHE-1386956

PATIENT
  Age: 49 Year
  Sex: Female
  Weight: 69.92 kg

DRUGS (12)
  1. HERCEPTIN [Suspect]
     Indication: BREAST CANCER
     Route: 042
     Dates: start: 20140313
  2. PERJETA [Suspect]
     Indication: BREAST CANCER
     Route: 042
     Dates: start: 20140403
  3. TAXOTERE [Concomitant]
     Indication: BREAST CANCER
     Route: 042
     Dates: start: 20130313
  4. MORPHINE [Concomitant]
     Dosage: 30MG, AS NEEDED UP TO 6 PER DAY, ON FOR 10 YEARS
     Route: 065
  5. SANCUSO [Concomitant]
     Indication: NAUSEA
     Dosage: 3.1MG PER 24 HOURS, APPLY DAY OF TREATMENT AND LEAVE ON FOR 1 WEEK
     Route: 065
  6. XANAX [Concomitant]
     Indication: ANXIETY
     Dosage: 1MG, AS NEEDED UP TO 3 TIMES A DAY;
     Route: 065
  7. AMITRIPTYLINE [Concomitant]
     Dosage: 25MG, 1 AT BEDTIME
     Route: 065
  8. PROTONIX (UNITED STATES) [Concomitant]
     Indication: GASTROOESOPHAGEAL REFLUX DISEASE
     Dosage: 40MG ONCE PER DAY
     Route: 065
  9. BENTYL [Concomitant]
     Indication: ABDOMINAL PAIN
     Dosage: 10MG AS NEEDED EVERY 6 HOURS
     Route: 065
  10. DIOVAN [Concomitant]
     Indication: BLOOD PRESSURE
     Dosage: 160MG DAILY
     Route: 065
  11. CARBOPLATIN [Concomitant]
     Indication: BREAST CANCER
     Route: 042
     Dates: start: 20130313
  12. SIMVASTATIN [Concomitant]
     Indication: BLOOD CHOLESTEROL
     Dosage: 5MG, 1 IN EVENING
     Route: 065

REACTIONS (13)
  - Dehydration [Recovering/Resolving]
  - Anuria [Recovering/Resolving]
  - Hypotension [Recovering/Resolving]
  - Renal impairment [Recovering/Resolving]
  - Gastrooesophageal reflux disease [Recovering/Resolving]
  - Dysphagia [Recovering/Resolving]
  - Genital herpes [Unknown]
  - Erythema [Unknown]
  - Temperature intolerance [Unknown]
  - Burning sensation [Unknown]
  - Stomatitis [Unknown]
  - Anxiety [Unknown]
  - Dysgeusia [Unknown]
